FAERS Safety Report 22334858 (Version 1)
Quarter: 2023Q2

REPORT INFORMATION
  Report Type: Spontaneous
  Country: FR (occurrence: FR)
  Receive Date: 20230518
  Receipt Date: 20230518
  Transmission Date: 20230722
  Serious: Yes (Other)
  Sender: FDA-Public Use
  Company Number: FR-BRISTOL-MYERS SQUIBB COMPANY-2023-068138

PATIENT
  Age: 61 Year
  Sex: Male

DRUGS (1)
  1. NIVOLUMAB [Suspect]
     Active Substance: NIVOLUMAB
     Indication: Renal cell carcinoma

REACTIONS (4)
  - Immune-mediated hepatic disorder [Recovering/Resolving]
  - Immune-mediated hypophysitis [Unknown]
  - Immune-mediated thyroiditis [Unknown]
  - Immune-mediated myocarditis [Unknown]
